FAERS Safety Report 9848566 (Version 1)
Quarter: 2013Q4

REPORT INFORMATION
  Report Type: Spontaneous
  Country: US (occurrence: None)
  Receive Date: 20131226
  Receipt Date: 20131226
  Transmission Date: 20140711
  Serious: Yes (Hospitalization)
  Sender: FDA-Public Use
  Company Number: PHEH2012US012429

PATIENT
  Age: 66 Year
  Sex: Female
  Weight: 70.7 kg

DRUGS (19)
  1. BENAZEPRIL HYDROCHLORIDE [Suspect]
     Route: 048
     Dates: start: 20101115, end: 201011
  2. ASPIRIN (ACETYLSALICYLIC ACID) [Concomitant]
  3. BACLOFEN (BACLOFEN) [Concomitant]
  4. CELEBREX (CELECOXIB) [Concomitant]
  5. PREMARIN (ESTROGENS CONJUGATED) [Concomitant]
  6. PRISTIQ (DESVENLAFAXINE SUCCINATE) [Concomitant]
  7. LASIX (FUROSEMIDE) [Concomitant]
  8. GABAPENTIN (GABAPENTIN) [Concomitant]
  9. LOVASTATIN (LOVASTATIN) [Concomitant]
  10. PROVERA (MEDROXYPROGESTERONE ACETATE) [Concomitant]
  11. PROMETHAZINE (PROMETHAZINE) [Concomitant]
  12. POTASSIUM CHLORATE (POTASSIUM CHLORATE) [Concomitant]
  13. PREDNISONE (PREDNISONE) [Concomitant]
  14. TRAMADOL (TRAMADOL) [Concomitant]
  15. OXYCODONE/APAP (OXYCODONE, PARACETAMOL) [Concomitant]
  16. SIMVASTATIN (SIMVASTATIN) [Concomitant]
  17. VITAMIN D (ERGOCALCIFEROL) [Concomitant]
  18. VITAMIN B6 (PYRIDOXINE HYDROCHLORIDE) [Concomitant]
  19. HYDROXYZINE (HYDROXYZINE) [Concomitant]

REACTIONS (8)
  - Angioedema [None]
  - Myocardial infarction [None]
  - Swelling face [None]
  - Local swelling [None]
  - Lip swelling [None]
  - Swollen tongue [None]
  - Pharyngeal oedema [None]
  - Chest pain [None]
